FAERS Safety Report 9209085 (Version 1)
Quarter: 2013Q2

REPORT INFORMATION
  Report Type: Spontaneous
  Country: US (occurrence: US)
  Receive Date: 20130404
  Receipt Date: 20130404
  Transmission Date: 20140414
  Serious: No
  Sender: FDA-Public Use
  Company Number: US-TEVA-395942USA

PATIENT
  Age: 19 Year
  Sex: Female

DRUGS (3)
  1. PLAN B ONE-STEP [Suspect]
     Indication: POST COITAL CONTRACEPTION
     Dosage: 1.5 MILLIGRAM DAILY;
     Route: 048
     Dates: start: 20130321, end: 20130321
  2. FLOVENT [Concomitant]
     Indication: ASTHMA
  3. PROAIR [Concomitant]
     Indication: ASTHMA

REACTIONS (2)
  - Menstruation irregular [Not Recovered/Not Resolved]
  - Off label use [Unknown]
